FAERS Safety Report 14433119 (Version 1)
Quarter: 2018Q1

REPORT INFORMATION
  Report Type: Spontaneous
  Country: US (occurrence: US)
  Receive Date: 20180124
  Receipt Date: 20180124
  Transmission Date: 20180509
  Serious: Yes (Other)
  Sender: FDA-Public Use
  Company Number: US-MYLANLABS-2017M1083468

PATIENT
  Sex: Male
  Weight: 47 kg

DRUGS (1)
  1. FENTANYL. [Suspect]
     Active Substance: FENTANYL
     Indication: PAIN
     Dosage: 125 ?G, Q2D
     Route: 062

REACTIONS (9)
  - Balance disorder [Unknown]
  - Loss of consciousness [Unknown]
  - Feeling abnormal [Unknown]
  - Drug effect delayed [Not Recovered/Not Resolved]
  - Drug ineffective [Unknown]
  - Tremor [Unknown]
  - Hallucination [Unknown]
  - Gastrointestinal motility disorder [Unknown]
  - Agitation [Unknown]
